FAERS Safety Report 5465567-3 (Version None)
Quarter: 2007Q3

REPORT INFORMATION
  Report Type: 
  Country: None (occurrence: None)
  Receive Date: 20070924
  Receipt Date: 20070913
  Transmission Date: 20080115
  Serious: Yes (Other)
  Sender: FDA-Public Use
  Company Number: AU-ASTRAZENECA-2007AP05805

PATIENT
  Age: 21699 Day
  Sex: Female
  Weight: 68 kg

DRUGS (6)
  1. CRESTOR [Suspect]
     Indication: METABOLIC DISORDER
     Route: 048
     Dates: start: 20061110, end: 20070510
  2. DIABEX [Concomitant]
  3. PANTOPRAZOLE SODIUM [Concomitant]
  4. ATENOLOL [Concomitant]
  5. EUTROXSIG [Concomitant]
  6. RAMACE [Concomitant]

REACTIONS (3)
  - HEPATIC PAIN [None]
  - HEPATITIS [None]
  - HEPATOMEGALY [None]
